FAERS Safety Report 9185142 (Version 2)
Quarter: 2013Q3

REPORT INFORMATION
  Report Type: Spontaneous
  Country: US (occurrence: US)
  Receive Date: 20130325
  Receipt Date: 20130802
  Transmission Date: 20140515
  Serious: No
  Sender: FDA-Public Use
  Company Number: US-009507513-1303USA010682

PATIENT
  Sex: Female
  Weight: 65.31 kg

DRUGS (11)
  1. VICTRELIS [Suspect]
     Indication: CHRONIC HEPATITIS C
     Dosage: 800 MG, THREE TIMES A DAY
     Route: 048
     Dates: start: 20130220
  2. VICTRELIS [Suspect]
     Dosage: 800 MG, THREE TIMES A DAY
     Route: 048
     Dates: start: 20130221
  3. PEGASYS [Suspect]
     Indication: HEPATITIS C
     Dosage: 180 MCG SQ WEEK
     Route: 058
  4. RIBAPAK [Suspect]
     Indication: HEPATITIS C
     Dosage: 600 MG IN AM AND 400 MG IN PM PO DAILY
     Route: 048
  5. XANAX [Concomitant]
     Dosage: 0.5 MG TAB AT BEDTIME
     Route: 048
  6. ZOLOFT [Concomitant]
     Dosage: 50 MG DAILY
  7. NEXIUM [Concomitant]
     Route: 048
  8. PYRIDOXINE [Concomitant]
     Dosage: 200 MG TAB DAILY
     Route: 048
  9. CYANOCOBALAMIN [Concomitant]
     Dosage: 500 MCG TAB DAILY
     Route: 048
  10. OMEGA-3 MARINE TRIGLYCERIDES [Concomitant]
     Dosage: 1200 MG SOFGEL DAILY
  11. PRILOSEC [Concomitant]
     Dosage: 40 MG CAP DAILY
     Route: 048

REACTIONS (8)
  - Musculoskeletal stiffness [Unknown]
  - Flatulence [Not Recovered/Not Resolved]
  - Rash [Not Recovered/Not Resolved]
  - Joint stiffness [Unknown]
  - Headache [Unknown]
  - Tension headache [Unknown]
  - Insomnia [Unknown]
  - Job dissatisfaction [Unknown]
